FAERS Safety Report 4553200-4 (Version None)
Quarter: 2005Q1

REPORT INFORMATION
  Report Type: 
  Country: None (occurrence: None)
  Receive Date: 20050113
  Receipt Date: 20050109
  Transmission Date: 20050727
  Serious: Yes (Other)
  Sender: FDA-Public Use
  Company Number: 2003111290

PATIENT
  Age: 74 Year
  Sex: Male
  Weight: 72.5755 kg

DRUGS (5)
  1. LIPITOR [Suspect]
     Indication: CEREBROVASCULAR ACCIDENT
     Dosage: 10 MG (DAILY), ORAL
     Route: 048
     Dates: start: 20021209
  2. WARFARIN SODIUM [Suspect]
     Indication: ILL-DEFINED DISORDER
  3. CLOPIDOGREL BISULFATE [Concomitant]
  4. AMLODIPINE BESYLATE [Concomitant]
  5. VITAMINS (VITAMINS) [Concomitant]

REACTIONS (7)
  - ACCIDENT [None]
  - BLOOD ARSENIC INCREASED [None]
  - DIFFICULTY IN WALKING [None]
  - HEARING IMPAIRED [None]
  - POISONING [None]
  - URINE ARSENIC INCREASED [None]
  - VICTIM OF CRIME [None]
